FAERS Safety Report 5162458-2 (Version None)
Quarter: 2006Q4

REPORT INFORMATION
  Report Type: 
  Country: None (occurrence: None)
  Receive Date: 20061128
  Receipt Date: 20061128
  Transmission Date: 20070319
  Serious: Yes (Other)
  Sender: FDA-Public Use
  Company Number: None

PATIENT
  Sex: Female
  Weight: 104.3273 kg

DRUGS (1)
  1. HALFLYTELY [Suspect]
     Indication: COLONOSCOPY
     Dosage: X 1 AS FOR COLONOSCOPY PREP ORAL
     Route: 048
     Dates: start: 20061108

REACTIONS (1)
  - NO ADVERSE EFFECT [None]
